FAERS Safety Report 4548060-1 (Version None)
Quarter: 2005Q1

REPORT INFORMATION
  Report Type: 
  Country: None (occurrence: None)
  Receive Date: 20050110
  Receipt Date: 20041026
  Transmission Date: 20050727
  Serious: Yes (Hospitalization, Other)
  Sender: FDA-Public Use
  Company Number: 200414061FR

PATIENT
  Age: 62 Year
  Sex: Male

DRUGS (3)
  1. ARAVA [Suspect]
     Indication: RHEUMATOID ARTHRITIS
     Route: 048
     Dates: end: 20040901
  2. CORTANCYL [Suspect]
     Indication: RHEUMATOID ARTHRITIS
     Route: 048
  3. DIAMICRON [Concomitant]
     Indication: DIABETES MELLITUS
     Route: 048
     Dates: end: 20040101

REACTIONS (9)
  - BRONCHIAL INFECTION [None]
  - CYTOLYTIC HEPATITIS [None]
  - GASTROENTERITIS [None]
  - HYPOVOLAEMIC SHOCK [None]
  - LABORATORY TEST INTERFERENCE [None]
  - PLATELET COUNT INCREASED [None]
  - RENAL FAILURE [None]
  - SEPSIS [None]
  - STAPHYLOCOCCAL INFECTION [None]
